FAERS Safety Report 7432549-1 (Version None)
Quarter: 2011Q2

REPORT INFORMATION
  Report Type: 
  Country: None (occurrence: None)
  Receive Date: 20110422
  Receipt Date: 20110413
  Transmission Date: 20111010
  Serious: Yes (Hospitalization, Other)
  Sender: FDA-Public Use
  Company Number: CA-ELI_LILLY_AND_COMPANY-CA201104003730

PATIENT
  Sex: Male

DRUGS (9)
  1. CLOZAPINE [Concomitant]
  2. CLONAZEPAM [Concomitant]
     Dosage: 2 MG, TID
  3. HALOPERIDOL [Concomitant]
     Dosage: 10 MG, PRN
  4. SEROQUEL [Concomitant]
     Dosage: 400 MG, EACH MORNING
     Route: 048
  5. ZYPREXA ZYDIS [Suspect]
     Indication: SCHIZOPHRENIA
     Dosage: 10 MG, UNK
  6. TRAZODONE HCL [Concomitant]
     Dosage: 150 MG, EACH EVENING
  7. SEROQUEL [Concomitant]
     Dosage: 500 MG, EACH EVENING
     Route: 048
  8. RITALIN [Concomitant]
     Dosage: 40 MG, EACH MORNING
     Route: 048
  9. ZYPREXA ZYDIS [Suspect]
     Dosage: 5 MG, PRN

REACTIONS (7)
  - BLOOD TRIGLYCERIDES INCREASED [None]
  - OVERDOSE [None]
  - RENAL FAILURE ACUTE [None]
  - WEIGHT INCREASED [None]
  - DIABETIC HYPEROSMOLAR COMA [None]
  - TYPE 2 DIABETES MELLITUS [None]
  - CELLULITIS [None]
